FAERS Safety Report 8192659-0 (Version None)
Quarter: 2012Q1

REPORT INFORMATION
  Report Type: 
  Country: None (occurrence: None)
  Receive Date: 20120308
  Receipt Date: 20120301
  Transmission Date: 20120608
  Serious: Yes (Death)
  Sender: FDA-Public Use
  Company Number: US-JNJFOC-20120302622

PATIENT
  Sex: Female

DRUGS (6)
  1. EXCEDRIN (ACETAMINOPHEN/ASPIRIN/CAFFEINE) [Suspect]
     Indication: MIGRAINE
     Route: 048
     Dates: start: 20111104
  2. TOPAMAX [Suspect]
     Indication: MIGRAINE PROPHYLAXIS
     Route: 048
     Dates: start: 20111104, end: 20111101
  3. EXCEDRIN PM CAPLETS [Suspect]
     Indication: SLEEP DISORDER
     Route: 048
  4. PERCOCET [Suspect]
     Indication: INTERVERTEBRAL DISC PROTRUSION
     Route: 048
  5. EXCEDRIN PM CAPLETS [Suspect]
     Indication: PAIN
     Route: 048
  6. XANAX [Concomitant]
     Route: 065

REACTIONS (6)
  - CARDIOMEGALY [None]
  - UNRESPONSIVE TO STIMULI [None]
  - PRODUCT QUALITY ISSUE [None]
  - DEATH [None]
  - PULSE ABSENT [None]
  - SNORING [None]
